FAERS Safety Report 4557873-1 (Version None)
Quarter: 2005Q1

REPORT INFORMATION
  Report Type: 
  Country: None (occurrence: None)
  Receive Date: 20050121
  Receipt Date: 20030110
  Transmission Date: 20050727
  Serious: No
  Sender: FDA-Public Use
  Company Number: US-BRISTOL-MYERS SQUIBB COMPANY-12155883

PATIENT
  Sex: Male

DRUGS (24)
  1. SERZONE [Suspect]
     Indication: POST CONCUSSION SYNDROME
     Route: 048
     Dates: start: 19961201, end: 19981101
  2. OLANZAPINE [Concomitant]
     Dosage: 1 DOSAGE FORM = 10 MG TABLET, TAKEN AT BEDTIME
     Dates: start: 19980301
  3. ALBUTEROL [Concomitant]
     Dosage: 90 MCG 200D, 2 PUFFS FOUR TIMES DAILY AS NEEDED
     Route: 055
  4. IPRATROPIUM BROMIDE [Concomitant]
     Dosage: 180MCG 200D, 2 PUFFS FOUR TIMES DAILY
     Route: 055
  5. BECLOMETHASONE [Concomitant]
     Dosage: 5 PUFFS TWICE DAILY
     Route: 055
  6. BENZATROPINE MESILATE [Concomitant]
     Route: 048
     Dates: start: 19980101, end: 19990101
  7. BUSPIRONE [Concomitant]
     Route: 048
  8. TEMAZEPAM [Concomitant]
     Route: 048
  9. AMOXICILLIN [Concomitant]
     Route: 048
  10. DIPHENHYDRAMINE HCL [Concomitant]
     Route: 048
  11. GUAIFENESIN [Concomitant]
     Dosage: 2 DOSAGE FORM = 2 TEASPOONFUL
     Route: 048
  12. INDOMETHACIN [Concomitant]
  13. CYCLOBENZAPRINE [Concomitant]
     Route: 048
  14. THIORIDAZINE HCL [Concomitant]
     Dosage: 2 TABLEST AT BEDTIME
     Route: 048
  15. LORAZEPAM [Concomitant]
     Route: 048
  16. TRAZODONE HCL [Concomitant]
     Route: 048
  17. SERTRALINE HCL [Concomitant]
  18. ZOLPIDEM TARTRATE [Concomitant]
     Route: 048
  19. ACETAMINOPHEN [Concomitant]
  20. TRIFLUOPERAZINE HCL [Concomitant]
     Route: 048
  21. CHLORPROMAZINE HYDROCHLORIDE [Concomitant]
     Route: 048
  22. IBUPROFEN [Concomitant]
  23. OFLOXACIN [Concomitant]
  24. TRANSDERMAL NICOTINE [Concomitant]
     Route: 062

REACTIONS (3)
  - EXTRAPYRAMIDAL DISORDER [None]
  - HALLUCINATION [None]
  - LIVER FUNCTION TEST ABNORMAL [None]
